FAERS Safety Report 9323872 (Version 1)
Quarter: 2013Q2

REPORT INFORMATION
  Report Type: Spontaneous
  Country: GB (occurrence: GB)
  Receive Date: 20130603
  Receipt Date: 20130603
  Transmission Date: 20140414
  Serious: Yes (Other)
  Sender: FDA-Public Use
  Company Number: GB-ASTELLAS-2013EU004533

PATIENT
  Sex: Female

DRUGS (2)
  1. VESICARE [Suspect]
     Dosage: UNK
     Route: 065
  2. OMEPRAZOLE [Suspect]
     Dosage: 20 MG, UNKNOWN/D
     Route: 065

REACTIONS (4)
  - Barrett^s oesophagus [Unknown]
  - Hiatus hernia [Unknown]
  - Epigastric discomfort [Unknown]
  - Dyspepsia [Unknown]
